APPROVED DRUG PRODUCT: EPLERENONE
Active Ingredient: EPLERENONE
Strength: 25MG
Dosage Form/Route: TABLET;ORAL
Application: A208283 | Product #001 | TE Code: AB
Applicant: BRECKENRIDGE PHARMACEUTICAL INC
Approved: Sep 14, 2018 | RLD: No | RS: No | Type: RX